FAERS Safety Report 24555472 (Version 1)
Quarter: 2024Q4

REPORT INFORMATION
  Report Type: Other
  Country: DE (occurrence: DE)
  Receive Date: 20241028
  Receipt Date: 20241028
  Transmission Date: 20250115
  Serious: Yes (Hospitalization, Other)
  Sender: Velzen Pharma
  Company Number: DE-Velzen pharma pvt ltd-2163941

PATIENT
  Age: 4 Month
  Sex: Male
  Weight: 4.39 kg

DRUGS (6)
  1. NIFEDIPINE [Suspect]
     Active Substance: NIFEDIPINE
     Indication: Tremor
  2. GLUCOSE (DEXTROSE MONOHYDRATE) [Concomitant]
     Active Substance: DEXTROSE MONOHYDRATE
  3. OXYBUTYNIN. [Concomitant]
     Active Substance: OXYBUTYNIN CHLORIDE
  4. BOTULINUM TOXIN NOS [Concomitant]
     Active Substance: BOTULINUM TOXIN NOS
  5. CLOBAZAM [Concomitant]
     Active Substance: CLOBAZAM
  6. LEVETIRACETAM [Concomitant]
     Active Substance: LEVETIRACETAM

REACTIONS (4)
  - Hypotension [Unknown]
  - Off label use [Unknown]
  - Product use issue [Unknown]
  - Tachycardia [Unknown]
